FAERS Safety Report 5840795-3 (Version None)
Quarter: 2008Q3

REPORT INFORMATION
  Report Type: 
  Country: None (occurrence: None)
  Receive Date: 20080811
  Receipt Date: 20080730
  Transmission Date: 20090109
  Serious: Yes (Other)
  Sender: FDA-Public Use
  Company Number: JP-PFIZER INC-2008053202

PATIENT
  Sex: Male
  Weight: 32 kg

DRUGS (3)
  1. SALAZOPYRIN [Suspect]
     Indication: COLITIS ULCERATIVE
     Dosage: DAILY DOSE:2000MG
     Route: 048
     Dates: start: 20070807, end: 20070810
  2. PREDNISOLONE [Concomitant]
     Dosage: DAILY DOSE:60MG
     Route: 048
     Dates: start: 20070707, end: 20070815
  3. PREDNISOLONE [Concomitant]
     Dosage: DAILY DOSE:25MG
     Route: 048
     Dates: start: 20080807

REACTIONS (1)
  - COLITIS ULCERATIVE [None]
